FAERS Safety Report 9276541 (Version 3)
Quarter: 2013Q2

REPORT INFORMATION
  Report Type: Spontaneous
  Country: BR (occurrence: BR)
  Receive Date: 20130507
  Receipt Date: 20130610
  Transmission Date: 20140414
  Serious: Yes (Other)
  Sender: FDA-Public Use
  Company Number: BR-ABBOTT-13X-020-1083974-00

PATIENT
  Age: 20 Year
  Sex: Male
  Weight: 114 kg

DRUGS (3)
  1. DEPAKOTE ER [Suspect]
     Indication: CONVULSION
     Dosage: 2 TABLETS PER NIGHT
     Route: 048
  2. UNKNOWN DRUG [Suspect]
     Indication: PRODUCT USED FOR UNKNOWN INDICATION
  3. TOPAMAX [Concomitant]
     Indication: CONVULSION
     Dosage: 1 TABLET IN THE MORNING AND 1 AT NIGHT

REACTIONS (5)
  - Convulsion [Unknown]
  - Petit mal epilepsy [Recovered/Resolved]
  - Weight increased [Unknown]
  - Muscle rigidity [Unknown]
  - Fall [Unknown]
